FAERS Safety Report 4351943-9 (Version None)
Quarter: 2004Q2

REPORT INFORMATION
  Report Type: 
  Country: None (occurrence: None)
  Receive Date: 20040429
  Receipt Date: 20040112
  Transmission Date: 20050107
  Serious: No
  Sender: FDA-Public Use
  Company Number: 2004-112287-NL

PATIENT
  Age: 37 Year
  Sex: Female
  Weight: 59.09 kg

DRUGS (4)
  1. NUVARING [Suspect]
     Indication: MENOPAUSAL SYMPTOMS
     Dosage: DF DAILY VAGINAL
     Route: 067
  2. DICYCLOMINE [Concomitant]
  3. THYROID TAB [Concomitant]
  4. HDYROCHLOROTHIAZIDE [Concomitant]

REACTIONS (2)
  - HOT FLUSH [None]
  - MIGRAINE [None]
